FAERS Safety Report 19446278 (Version 1)
Quarter: 2021Q2

REPORT INFORMATION
  Report Type: Report from Study
  Country: None (occurrence: US)
  Receive Date: 20210622
  Receipt Date: 20210622
  Transmission Date: 20210717
  Serious: Yes (Other)
  Sender: FDA-Public Use
  Company Number: US-ABBVIE-21K-163-3852762-00

PATIENT
  Age: 24 Year
  Sex: Female
  Weight: 61.29 kg

DRUGS (3)
  1. COVID?19 VACCINE [Concomitant]
     Indication: COVID-19 IMMUNISATION
     Dosage: PFIZER
     Route: 030
     Dates: start: 20210507, end: 20210507
  2. COVID?19 VACCINE [Concomitant]
     Dosage: PFIZER
     Route: 030
     Dates: start: 20210527, end: 20210527
  3. HUMIRA [Suspect]
     Active Substance: ADALIMUMAB
     Indication: HIDRADENITIS
     Route: 058
     Dates: start: 202010

REACTIONS (5)
  - Pain [Unknown]
  - Nausea [Unknown]
  - Therapeutic product effect delayed [Unknown]
  - Ankle arthroplasty [Unknown]
  - Ligament rupture [Recovering/Resolving]

NARRATIVE: CASE EVENT DATE: 20201206
